FAERS Safety Report 6389816-2 (Version None)
Quarter: 2009Q4

REPORT INFORMATION
  Report Type: 
  Country: None (occurrence: None)
  Receive Date: 20091003
  Receipt Date: 20090922
  Transmission Date: 20100525
  Serious: Yes (Hospitalization)
  Sender: FDA-Public Use
  Company Number: FABR-1000997

PATIENT
  Age: 43 Year
  Sex: Female
  Weight: 76.4 kg

DRUGS (1)
  1. FABRAZYME [Suspect]
     Indication: FABRY'S DISEASE
     Dosage: 40 MG, Q2W, INTRAVENOUS, 80 MG, Q2W, INTRAVENOUS
     Route: 042
     Dates: start: 20060623

REACTIONS (4)
  - CONTUSION [None]
  - LOWER LIMB FRACTURE [None]
  - RIB FRACTURE [None]
  - ROAD TRAFFIC ACCIDENT [None]
